FAERS Safety Report 6170998-2 (Version None)
Quarter: 2009Q2

REPORT INFORMATION
  Report Type: 
  Country: None (occurrence: None)
  Receive Date: 20090429
  Receipt Date: 20090319
  Transmission Date: 20091009
  Serious: No
  Sender: FDA-Public Use
  Company Number: A0774036A

PATIENT
  Age: 49 Year
  Sex: Female

DRUGS (9)
  1. FLOVENT [Suspect]
     Indication: ASTHMA
     Dosage: 1PUFF TWICE PER DAY
     Route: 055
     Dates: start: 20090317
  2. FLOVENT [Suspect]
     Dosage: 2PUFF TWICE PER DAY
     Route: 055
     Dates: start: 20080801, end: 20090316
  3. MOTRIN [Concomitant]
  4. PRILOSEC [Concomitant]
  5. LORATADINE [Concomitant]
  6. VISTARIL [Concomitant]
  7. TUMS [Concomitant]
  8. CYMBALTA [Concomitant]
  9. UNKNOWN MEDICATION [Concomitant]

REACTIONS (3)
  - ABDOMINAL DISCOMFORT [None]
  - INCREASED APPETITE [None]
  - WEIGHT INCREASED [None]
